FAERS Safety Report 7562980-5 (Version None)
Quarter: 2011Q2

REPORT INFORMATION
  Report Type: 
  Country: None (occurrence: None)
  Receive Date: 20110622
  Receipt Date: 20110614
  Transmission Date: 20111010
  Serious: Yes (Hospitalization, Other)
  Sender: FDA-Public Use
  Company Number: US-NAPPMUNDI-USA-2011-0070330

PATIENT
  Age: 75 Year
  Sex: Female
  Weight: 57 kg

DRUGS (3)
  1. DOCETAXEL [Suspect]
     Indication: NEOPLASM MALIGNANT
     Dosage: 68.4 MG, SEE TEXT
     Route: 042
     Dates: start: 20110124, end: 20110418
  2. OXYCONTIN [Suspect]
     Indication: PRODUCT USED FOR UNKNOWN INDICATION
  3. TEMSIROLIMUS [Suspect]
     Indication: NEOPLASM MALIGNANT
     Dosage: 10 MG, SEE TEXT
     Route: 042
     Dates: start: 20110124, end: 20110418

REACTIONS (10)
  - METASTASES TO CENTRAL NERVOUS SYSTEM [None]
  - CONSTIPATION [None]
  - DEHYDRATION [None]
  - DYSPNOEA [None]
  - HYPOPHOSPHATAEMIA [None]
  - LYMPHOPENIA [None]
  - URINARY RETENTION [None]
  - PLEURAL EFFUSION [None]
  - ANAEMIA [None]
  - WHITE BLOOD CELL COUNT DECREASED [None]
